FAERS Safety Report 7764828-2 (Version None)
Quarter: 2011Q3

REPORT INFORMATION
  Report Type: 
  Country: None (occurrence: None)
  Receive Date: 20110921
  Receipt Date: 20110915
  Transmission Date: 20111222
  Serious: Yes (Hospitalization, Other)
  Sender: FDA-Public Use
  Company Number: US-PFIZER INC-2011147842

PATIENT
  Sex: Female

DRUGS (1)
  1. CHANTIX [Suspect]
     Indication: SMOKING CESSATION THERAPY
     Dosage: STARTER PACK, UNK
     Dates: start: 20071201, end: 20071226

REACTIONS (10)
  - HALLUCINATION, AUDITORY [None]
  - INTENTIONAL OVERDOSE [None]
  - DRUG WITHDRAWAL SYNDROME [None]
  - MOOD ALTERED [None]
  - ABNORMAL DREAMS [None]
  - AGGRESSION [None]
  - PARANOIA [None]
  - SUICIDE ATTEMPT [None]
  - DEPRESSION [None]
  - ABNORMAL BEHAVIOUR [None]
